FAERS Safety Report 19695348 (Version 4)
Quarter: 2021Q4

REPORT INFORMATION
  Report Type: Spontaneous
  Country: AT (occurrence: AT)
  Receive Date: 20210812
  Receipt Date: 20211006
  Transmission Date: 20220303
  Serious: Yes (Death, Hospitalization, Other)
  Sender: FDA-Public Use
  Company Number: AT-GILEAD-2021-0541873

PATIENT
  Age: 59 Year
  Sex: Female
  Weight: 107 kg

DRUGS (2)
  1. SACITUZUMAB GOVITECAN-HZIY [Suspect]
     Active Substance: SACITUZUMAB GOVITECAN-HZIY
     Indication: Triple negative breast cancer
     Dosage: DAY1+8 REPEAT DAY22 (CYCLE 1 + 2)
     Route: 042
     Dates: start: 20201218
  2. SACITUZUMAB GOVITECAN-HZIY [Suspect]
     Active Substance: SACITUZUMAB GOVITECAN-HZIY
     Dosage: DAY1+15 REPEATED DAY 29 (CYCLE 3 TO 5)
     Route: 042
     Dates: end: 202106

REACTIONS (15)
  - Death [Fatal]
  - Disease progression [Unknown]
  - Respiratory disorder [Unknown]
  - Diarrhoea [Unknown]
  - Mucosal inflammation [Unknown]
  - Fatigue [Unknown]
  - Asthenia [Unknown]
  - Decreased appetite [Unknown]
  - Alopecia [Unknown]
  - Dizziness [Unknown]
  - Arthralgia [Unknown]
  - Dyspnoea [Unknown]
  - Insomnia [Unknown]
  - Treatment noncompliance [Unknown]
  - Inappropriate schedule of product administration [Unknown]

NARRATIVE: CASE EVENT DATE: 20210601
